FAERS Safety Report 9721581 (Version 1)
Quarter: 2013Q4

REPORT INFORMATION
  Report Type: Spontaneous
  Country: BR (occurrence: BR)
  Receive Date: 20131201
  Receipt Date: 20131201
  Transmission Date: 20140711
  Serious: Yes (Other)
  Sender: FDA-Public Use
  Company Number: BR-009507513-1311BRA012548

PATIENT
  Age: 27 Year
  Sex: Female
  Weight: 74 kg

DRUGS (8)
  1. MERCILON [Suspect]
     Indication: CONTRACEPTION
     Dosage: 150/20 MICROGRAM, QD
     Route: 048
  2. MERCILON [Suspect]
     Dosage: 150/20 MICROGRAM, QD
     Route: 048
     Dates: start: 2000
  3. RIVOTRIL [Concomitant]
     Indication: ANXIETY
     Dosage: 2 MG, PRN
     Route: 048
     Dates: start: 2006
  4. DIAZEPAM (MAGISTRAL FORMULA) [Concomitant]
     Indication: DEPRESSION
     Dosage: 3 DF, QD
     Route: 048
     Dates: start: 2006
  5. BIPERIDEN (MAGISTRAL FORMULA) [Concomitant]
     Indication: DEPRESSION
     Dosage: 3 DF, QD
     Route: 048
     Dates: start: 2006
  6. LEVOMEPROMAZINE (MAGISTRAL FORMULA) [Concomitant]
     Indication: DEPRESSION
     Dosage: 3 DF, QD
     Route: 048
     Dates: start: 2006
  7. CITALOPRAM (MAGISTRAL FORMULA) [Concomitant]
     Indication: DEPRESSION
     Dosage: 3 DF, QD
     Route: 048
     Dates: start: 2006
  8. CLOZAPINE (MAGISTRAL FORMULA) [Concomitant]
     Indication: DEPRESSION
     Dosage: 3 DF, QD
     Route: 048
     Dates: start: 2006

REACTIONS (6)
  - Caesarean section [Recovered/Resolved]
  - Premature separation of placenta [Recovered/Resolved]
  - Renal stone removal [Recovered/Resolved]
  - Nephrolithiasis [Recovered/Resolved]
  - Lordosis [Recovered/Resolved]
  - Maternal exposure before pregnancy [Unknown]
